FAERS Safety Report 7208104-5 (Version None)
Quarter: 2010Q4

REPORT INFORMATION
  Report Type: 
  Country: None (occurrence: None)
  Receive Date: 20101230
  Receipt Date: 20101230
  Transmission Date: 20110411
  Serious: Yes (Other)
  Sender: FDA-Public Use
  Company Number: None

PATIENT
  Sex: Male
  Weight: 91.173 kg

DRUGS (1)
  1. AMBIEN [Suspect]
     Indication: INSOMNIA
     Dosage: ONE EVERY 4 HOURS PRN INJ
     Dates: end: 20041231

REACTIONS (21)
  - ABNORMAL BEHAVIOUR [None]
  - AGGRESSION [None]
  - AGITATION [None]
  - AMNESIA [None]
  - ANXIETY [None]
  - APATHY [None]
  - ATAXIA [None]
  - BALANCE DISORDER [None]
  - CEREBRAL ATROPHY [None]
  - CEREBRAL VENTRICLE DILATATION [None]
  - COGNITIVE DISORDER [None]
  - DEMENTIA [None]
  - DEPERSONALISATION [None]
  - DISINHIBITION [None]
  - ERECTILE DYSFUNCTION [None]
  - MOOD SWINGS [None]
  - MUSCLE SPASMS [None]
  - NEUROLOGICAL DECOMPENSATION [None]
  - PSYCHOMOTOR RETARDATION [None]
  - SUICIDAL IDEATION [None]
  - THINKING ABNORMAL [None]
